FAERS Safety Report 5075267-X (Version None)
Quarter: 2006Q3

REPORT INFORMATION
  Report Type: 
  Country: None (occurrence: None)
  Receive Date: 20060809
  Receipt Date: 20051115
  Transmission Date: 20061208
  Serious: No
  Sender: FDA-Public Use
  Company Number: US-AMGEN-KDL158158

PATIENT
  Sex: Female
  Weight: 76.3 kg

DRUGS (1)
  1. PROCRIT [Suspect]
     Indication: PREOPERATIVE CARE
     Route: 058
     Dates: start: 20051003, end: 20051012

REACTIONS (2)
  - DRUG ADMINISTRATION ERROR [None]
  - THERAPEUTIC RESPONSE DELAYED [None]
